FAERS Safety Report 7917809-X (Version None)
Quarter: 2011Q4

REPORT INFORMATION
  Report Type: 
  Country: None (occurrence: None)
  Receive Date: 20111114
  Receipt Date: 20111104
  Transmission Date: 20120403
  Serious: Yes (Other)
  Sender: FDA-Public Use
  Company Number: 2009SP040575

PATIENT
  Age: 46 Year
  Sex: Female
  Weight: 60 kg

DRUGS (2)
  1. IMPLANON [Suspect]
     Indication: PRODUCT USED FOR UNKNOWN INDICATION
     Dosage: 1 DF; SC
     Route: 058
     Dates: start: 20080420, end: 20110727
  2. IMPLANON [Suspect]
     Indication: PRODUCT USED FOR UNKNOWN INDICATION
     Dosage: 1 DF; SC
     Route: 058
     Dates: start: 20050222, end: 20080420

REACTIONS (6)
  - DEVICE DISLOCATION [None]
  - PARAESTHESIA [None]
  - CARPAL TUNNEL SYNDROME [None]
  - METRORRHAGIA [None]
  - HYPOAESTHESIA [None]
  - DEVICE DIFFICULT TO USE [None]
